FAERS Safety Report 9237803 (Version 4)
Quarter: 2013Q2

REPORT INFORMATION
  Report Type: Spontaneous
  Country: US (occurrence: US)
  Receive Date: 20130418
  Receipt Date: 20130626
  Transmission Date: 20140414
  Serious: Yes (Hospitalization)
  Sender: FDA-Public Use
  Company Number: US-BIOGENIDEC-2013BI033954

PATIENT
  Age: 47 Year
  Sex: Male

DRUGS (1)
  1. TYSABRI [Suspect]
     Indication: MULTIPLE SCLEROSIS
     Route: 042
     Dates: start: 20071012

REACTIONS (4)
  - Multiple sclerosis relapse [Recovered/Resolved]
  - Spinal osteoarthritis [Unknown]
  - Fall [Recovered/Resolved]
  - Central nervous system lesion [Unknown]
